FAERS Safety Report 18004946 (Version 1)
Quarter: 2020Q3

REPORT INFORMATION
  Report Type: Spontaneous
  Country: BE (occurrence: BE)
  Receive Date: 20200709
  Receipt Date: 20200709
  Transmission Date: 20201103
  Serious: Yes (Hospitalization)
  Sender: FDA-Public Use
  Company Number: BE-JNJFOC-20200639691

PATIENT

DRUGS (9)
  1. XEPLION [Suspect]
     Active Substance: PALIPERIDONE PALMITATE
  2. HALDOL [Concomitant]
     Active Substance: HALOPERIDOL
     Dosage: 100 DROPS
     Dates: start: 202005
  3. ETUMINE [Concomitant]
     Active Substance: CLOTHIAPINE
     Dates: start: 202005
  4. XEPLION [Suspect]
     Active Substance: PALIPERIDONE PALMITATE
     Indication: PRODUCT USED FOR UNKNOWN INDICATION
     Dosage: DAY 0 DOSE
     Route: 030
     Dates: start: 20200605, end: 20200605
  5. INDERAL [Concomitant]
     Active Substance: PROPRANOLOL HYDROCHLORIDE
     Dates: start: 202005
  6. TEMESTA                            /00273201/ [Concomitant]
     Active Substance: LORAZEPAM
     Dosage: PER DAY
     Dates: start: 202005
  7. CLOPIXOL                           /00876702/ [Concomitant]
     Active Substance: ZUCLOPENTHIXOL ACETATE
     Dosage: 2 TIMES
     Dates: start: 202005
  8. HALDOL [Concomitant]
     Active Substance: HALOPERIDOL
     Dosage: 75 DROPS
  9. XEPLION [Suspect]
     Active Substance: PALIPERIDONE PALMITATE
     Route: 030
     Dates: start: 20200610, end: 20200610

REACTIONS (2)
  - Vomiting [Unknown]
  - Hyponatraemia [Unknown]

NARRATIVE: CASE EVENT DATE: 20200624
